FAERS Safety Report 8119473-6 (Version None)
Quarter: 2012Q1

REPORT INFORMATION
  Report Type: 
  Country: None (occurrence: None)
  Receive Date: 20120207
  Receipt Date: 20120126
  Transmission Date: 20120608
  Serious: Yes (Hospitalization)
  Sender: FDA-Public Use
  Company Number: PHHY2012AR007774

PATIENT
  Sex: Male

DRUGS (2)
  1. EXFORGE [Suspect]
     Indication: DIURETIC THERAPY
  2. EXFORGE [Suspect]
     Indication: BLOOD PRESSURE
     Dosage: 1 DF, (160/5 MG, DAILY)

REACTIONS (1)
  - INFECTION [None]
